FAERS Safety Report 4503872-5 (Version None)
Quarter: 2004Q4

REPORT INFORMATION
  Report Type: 
  Country: None (occurrence: None)
  Receive Date: 20041115
  Receipt Date: 20041103
  Transmission Date: 20050328
  Serious: Yes (Other)
  Sender: FDA-Public Use
  Company Number: 2004089249

PATIENT
  Age: 72 Year
  Sex: Female

DRUGS (4)
  1. ATORVASTATIN CALCIUM [Suspect]
     Indication: BLOOD CHOLESTEROL
     Dosage: 20 MG, ORAL
     Route: 048
     Dates: end: 20041001
  2. LEVOTHYROXINE SODIUM [Concomitant]
  3. CEPHALEXIN MONOHYDRATE [Concomitant]
  4. RISEDRONATE SODIUM (RISEDRONATE SODIUM) [Concomitant]

REACTIONS (4)
  - ARTHRALGIA [None]
  - FATIGUE [None]
  - FEELING ABNORMAL [None]
  - HYPOTHYROIDISM [None]
